FAERS Safety Report 9189885 (Version 1)
Quarter: 2013Q1

REPORT INFORMATION
  Report Type: Spontaneous
  Country: US (occurrence: None)
  Receive Date: 20120703
  Receipt Date: 20120703
  Transmission Date: 20140127
  Serious: Yes (Hospitalization, Other)
  Sender: FDA-Public Use
  Company Number: PHEH2012US005573

PATIENT
  Age: 32 Year
  Sex: Male

DRUGS (2)
  1. GILENYA [Suspect]
     Route: 048
     Dates: start: 201106
  2. BACLOFEN (BACLOFEN) [Concomitant]

REACTIONS (4)
  - Lymphocyte count decreased [None]
  - Neutrophil count decreased [None]
  - Anisocytosis [None]
  - White blood cell count decreased [None]
